FAERS Safety Report 5481341-6 (Version None)
Quarter: 2007Q4

REPORT INFORMATION
  Report Type: 
  Country: None (occurrence: None)
  Receive Date: 20071004
  Receipt Date: 20071004
  Transmission Date: 20080405
  Serious: Yes (Other)
  Sender: FDA-Public Use
  Company Number: None

PATIENT
  Age: 32 Year
  Sex: Female
  Weight: 108.8633 kg

DRUGS (4)
  1. CYMBALTA [Suspect]
     Indication: ANXIETY
     Dosage: 60 MG DAILY PO
     Route: 048
     Dates: start: 20050301, end: 20060801
  2. CYMBALTA [Suspect]
     Indication: DEPRESSION
     Dosage: 60 MG DAILY PO
     Route: 048
     Dates: start: 20050301, end: 20060801
  3. CYMBALTA [Suspect]
     Indication: MIGRAINE
     Dosage: 60 MG DAILY PO
     Route: 048
     Dates: start: 20050301, end: 20060801
  4. CYMBALTA [Suspect]
     Indication: DEPRESSION
     Dosage: 30MG DAILY PO
     Route: 048
     Dates: start: 20060802, end: 20071003

REACTIONS (13)
  - CONFUSIONAL STATE [None]
  - COORDINATION ABNORMAL [None]
  - CRYING [None]
  - DIARRHOEA [None]
  - DRUG WITHDRAWAL SYNDROME [None]
  - GASTROINTESTINAL DISORDER [None]
  - HEADACHE [None]
  - HYPERHIDROSIS [None]
  - ILL-DEFINED DISORDER [None]
  - MIGRAINE [None]
  - NIGHTMARE [None]
  - PARAESTHESIA [None]
  - TINNITUS [None]
